FAERS Safety Report 6464486-3 (Version None)
Quarter: 2009Q4

REPORT INFORMATION
  Report Type: 
  Country: None (occurrence: None)
  Receive Date: 20091124
  Receipt Date: 20091116
  Transmission Date: 20100525
  Serious: Yes (Death)
  Sender: FDA-Public Use
  Company Number: 2009AC000053

PATIENT
  Age: 97 Year
  Sex: Male

DRUGS (1)
  1. DIGOXIN [Suspect]
     Dosage: 0.125 MG;QD;PO
     Route: 048

REACTIONS (12)
  - ARTERIOSCLEROSIS [None]
  - BLOOD URINE PRESENT [None]
  - CARDIAC FAILURE CONGESTIVE [None]
  - CARDIO-RESPIRATORY ARREST [None]
  - DEMENTIA [None]
  - ECONOMIC PROBLEM [None]
  - MULTIPLE INJURIES [None]
  - PROTEIN URINE PRESENT [None]
  - SURGERY [None]
  - URINARY SEDIMENT PRESENT [None]
  - URINE LEUKOCYTE ESTERASE POSITIVE [None]
  - WHITE BLOOD CELLS URINE POSITIVE [None]
